FAERS Safety Report 12618383 (Version 1)
Quarter: 2016Q3

REPORT INFORMATION
  Report Type: Spontaneous
  Country: US (occurrence: US)
  Receive Date: 20160803
  Receipt Date: 20160803
  Transmission Date: 20161109
  Serious: Yes (Other)
  Sender: FDA-Public Use
  Company Number: US-WEST-WARD PHARMACEUTICALS CORP.-US-H14001-16-01361

PATIENT
  Age: 41 Year
  Sex: Female

DRUGS (5)
  1. STEROIDS [Suspect]
     Active Substance: UNSPECIFIED INGREDIENT
     Indication: MIXED CONNECTIVE TISSUE DISEASE
     Route: 065
  2. METHOTREXATE. [Suspect]
     Active Substance: METHOTREXATE
     Indication: MIXED CONNECTIVE TISSUE DISEASE
     Route: 065
  3. MOFETIL MICOPHENOLATE [Suspect]
     Active Substance: MYCOPHENOLATE MOFETIL\MYCOPHENOLATE MOFETIL HYDROCHLORIDE
     Indication: MIXED CONNECTIVE TISSUE DISEASE
     Route: 065
  4. IVIG [Suspect]
     Active Substance: HUMAN IMMUNOGLOBULIN G
     Indication: MIXED CONNECTIVE TISSUE DISEASE
     Route: 065
  5. PREDNISONE. [Suspect]
     Active Substance: PREDNISONE
     Indication: MIXED CONNECTIVE TISSUE DISEASE
     Route: 065

REACTIONS (12)
  - Anaemia [None]
  - Cardiac arrest [None]
  - Thrombocytopenia [None]
  - Condition aggravated [None]
  - Renal impairment [Unknown]
  - Intestinal fibrosis [None]
  - Red blood cell schistocytes present [None]
  - Polymyositis [None]
  - Disease complication [None]
  - Thrombotic microangiopathy [None]
  - Renal tubular atrophy [None]
  - Cardiomyopathy acute [None]
